FAERS Safety Report 23727785 (Version 1)
Quarter: 2024Q2

REPORT INFORMATION
  Report Type: Spontaneous
  Country: US (occurrence: None)
  Receive Date: 20240410
  Receipt Date: 20240410
  Transmission Date: 20240716
  Serious: No
  Sender: FDA-Public Use
  Company Number: None

PATIENT
  Sex: Female
  Weight: 99.7 kg

DRUGS (4)
  1. CYTARABINE\DAUNORUBICIN [Suspect]
     Active Substance: CYTARABINE\DAUNORUBICIN
  2. DEXAMETHASONE [Concomitant]
     Active Substance: DEXAMETHASONE
  3. LENALIDOMIDE [Suspect]
     Active Substance: LENALIDOMIDE
  4. BORTEZOMIB [Concomitant]

REACTIONS (8)
  - Flank pain [None]
  - Dysuria [None]
  - Urinary tract infection [None]
  - Fatigue [None]
  - Pyrexia [None]
  - Cough [None]
  - Pulmonary cavitation [None]
  - Bronchopulmonary aspergillosis [None]

NARRATIVE: CASE EVENT DATE: 20230825
